FAERS Safety Report 12423730 (Version 1)
Quarter: 2016Q2

REPORT INFORMATION
  Report Type: Spontaneous
  Country: US (occurrence: US)
  Receive Date: 20160601
  Receipt Date: 20160601
  Transmission Date: 20160815
  Serious: No
  Sender: FDA-Public Use
  Company Number: US-NOVEN PHARMACEUTICALS, INC.-US2015000879

PATIENT
  Age: 13 Year
  Sex: Female

DRUGS (1)
  1. DAYTRANA [Suspect]
     Active Substance: METHYLPHENIDATE
     Indication: ATTENTION DEFICIT/HYPERACTIVITY DISORDER
     Dosage: 20 MG FOR 9 HOURS
     Route: 062

REACTIONS (4)
  - Product quality issue [Unknown]
  - No adverse event [Unknown]
  - Drug administration error [Unknown]
  - Drug dose omission [Unknown]
